FAERS Safety Report 26046613 (Version 1)
Quarter: 2025Q4

REPORT INFORMATION
  Report Type: Spontaneous
  Country: US (occurrence: None)
  Receive Date: 20251113
  Receipt Date: 20251113
  Transmission Date: 20260118
  Serious: No
  Sender: FDA-CTU
  Company Number: None

PATIENT
  Sex: Male

DRUGS (2)
  1. RINVOQ [Suspect]
     Active Substance: UPADACITINIB
  2. RINVOQ [Concomitant]
     Active Substance: UPADACITINIB
     Dates: start: 20251111

REACTIONS (1)
  - Dry mouth [None]
